FAERS Safety Report 13959389 (Version 4)
Quarter: 2017Q4

REPORT INFORMATION
  Report Type: Report from Study
  Country: None (occurrence: CA)
  Receive Date: 20170912
  Receipt Date: 20171107
  Transmission Date: 20180320
  Serious: Yes (Hospitalization)
  Sender: FDA-Public Use
  Company Number: CA-ABBVIE-17K-028-1992856-00

PATIENT
  Sex: Male

DRUGS (4)
  1. MEROPENEM. [Suspect]
     Active Substance: MEROPENEM
     Indication: BACTERIAL INFECTION
     Route: 058
     Dates: start: 20170926, end: 2017
  2. HUMIRA [Suspect]
     Active Substance: ADALIMUMAB
     Route: 058
     Dates: start: 2017, end: 201709
  3. MEROPENEM. [Suspect]
     Active Substance: MEROPENEM
     Indication: ABSCESS BACTERIAL
  4. HUMIRA [Suspect]
     Active Substance: ADALIMUMAB
     Indication: CROHN^S DISEASE
     Route: 058
     Dates: start: 20170405, end: 2017

REACTIONS (9)
  - Alopecia [Not Recovered/Not Resolved]
  - Crohn^s disease [Not Recovered/Not Resolved]
  - Heart rate increased [Recovered/Resolved]
  - Hypotension [Recovered/Resolved]
  - Gait disturbance [Not Recovered/Not Resolved]
  - Abscess bacterial [Not Recovered/Not Resolved]
  - Arthralgia [Recovering/Resolving]
  - Crohn^s disease [Recovered/Resolved]
  - Erythema nodosum [Not Recovered/Not Resolved]

NARRATIVE: CASE EVENT DATE: 2017
